FAERS Safety Report 5472681-5 (Version None)
Quarter: 2007Q4

REPORT INFORMATION
  Report Type: 
  Country: None (occurrence: None)
  Receive Date: 20071001
  Receipt Date: 20070917
  Transmission Date: 20080405
  Serious: Yes (Other)
  Sender: FDA-Public Use
  Company Number: DE-GENENTECH-243440

PATIENT
  Age: 58 Year
  Sex: Female

DRUGS (3)
  1. LUCENTIS [Suspect]
     Indication: DETACHMENT OF RETINAL PIGMENT EPITHELIUM
     Dosage: 1 DF, SINGLE
     Route: 031
     Dates: start: 20070502, end: 20070502
  2. LUCENTIS [Suspect]
     Dosage: 1 DF, SINGLE
     Route: 031
     Dates: start: 20070630, end: 20070630
  3. CORTISONE ACETATE TAB [Suspect]
     Indication: HYPERSENSITIVITY
     Dosage: UNK, UNK
     Route: 030
     Dates: start: 20070430

REACTIONS (1)
  - VIRAL INFECTION [None]
